FAERS Safety Report 7399306-6 (Version None)
Quarter: 2011Q1

REPORT INFORMATION
  Report Type: 
  Country: None (occurrence: None)
  Receive Date: 20110301
  Receipt Date: 20100326
  Transmission Date: 20110831
  Serious: Yes (Other)
  Sender: FDA-Public Use
  Company Number: RB-05629-2010

PATIENT
  Sex: Female

DRUGS (7)
  1. MARIJUANA [Suspect]
     Indication: PRODUCT USED FOR UNKNOWN INDICATION
  2. SUBOXONE [Suspect]
     Indication: PRODUCT USED FOR UNKNOWN INDICATION
  3. FOCALIN [Suspect]
     Indication: PRODUCT USED FOR UNKNOWN INDICATION
  4. PSYCHOSTIMULANTS AND NOOTROPICS [Suspect]
     Indication: PRODUCT USED FOR UNKNOWN INDICATION
  5. XANAX [Suspect]
     Indication: PRODUCT USED FOR UNKNOWN INDICATION
  6. AMBIEN [Suspect]
     Indication: PRODUCT USED FOR UNKNOWN INDICATION
  7. ADDERALL 10 [Suspect]
     Indication: PRODUCT USED FOR UNKNOWN INDICATION

REACTIONS (2)
  - TOXICITY TO VARIOUS AGENTS [None]
  - DRUG DIVERSION [None]
